FAERS Safety Report 14770877 (Version 2)
Quarter: 2018Q2

REPORT INFORMATION
  Report Type: Spontaneous
  Country: BR (occurrence: BR)
  Receive Date: 20180417
  Receipt Date: 20180423
  Transmission Date: 20180711
  Serious: Yes (Other)
  Sender: FDA-Public Use
  Company Number: BR-GE HEALTHCARE LIFE SCIENCES-2018CSU001468

PATIENT

DRUGS (5)
  1. CLONAZEPAM. [Concomitant]
     Active Substance: CLONAZEPAM
     Dosage: 2.5 MG, QD
  2. DESALEX [Concomitant]
     Active Substance: DESLORATADINE
     Indication: PREMEDICATION
     Dosage: 5 MG, QD
     Route: 048
     Dates: start: 20180305, end: 20180309
  3. FLUOXETINE [Concomitant]
     Active Substance: FLUOXETINE HYDROCHLORIDE
     Dosage: 20 MG, QD
  4. OMNIPAQUE [Suspect]
     Active Substance: IOHEXOL
     Indication: HEPATIC MASS
     Dosage: UNK UNK, SINGLE
     Route: 042
     Dates: start: 20180308, end: 20180308
  5. METICORTEN [Concomitant]
     Active Substance: PREDNISONE
     Indication: PREMEDICATION
     Dosage: 20 MG, BID
     Route: 048
     Dates: start: 20180306, end: 20180308

REACTIONS (2)
  - Cough [Recovered/Resolved]
  - Respiratory distress [Recovered/Resolved]

NARRATIVE: CASE EVENT DATE: 20180308
